FAERS Safety Report 20213790 (Version 1)
Quarter: 2021Q4

REPORT INFORMATION
  Report Type: Spontaneous
  Country: US (occurrence: None)
  Receive Date: 20211221
  Receipt Date: 20211221
  Transmission Date: 20220303
  Serious: No
  Sender: FDA-Public Use
  Company Number: None

PATIENT
  Age: 85 Year
  Sex: Female
  Weight: 55.79 kg

DRUGS (4)
  1. ORENCIA [Suspect]
     Active Substance: ABATACEPT
     Indication: Senile osteoporosis
     Dosage: FREQUENCY : WEEKLY;?
     Route: 058
     Dates: start: 202006
  2. ORENCIA [Suspect]
     Active Substance: ABATACEPT
     Indication: Osteoporosis
  3. ORENCIA [Suspect]
     Active Substance: ABATACEPT
     Indication: Osteoporosis
  4. ORENCIA [Suspect]
     Active Substance: ABATACEPT
     Indication: Osteoporosis

REACTIONS (1)
  - Urinary tract infection [None]
